FAERS Safety Report 9380920 (Version 3)
Quarter: 2013Q3

REPORT INFORMATION
  Report Type: Spontaneous
  Country: US (occurrence: US)
  Receive Date: 20130703
  Receipt Date: 20130925
  Transmission Date: 20140515
  Serious: Yes (Hospitalization, Other)
  Sender: FDA-Public Use
  Company Number: US-ROCHE-749859

PATIENT
  Sex: Male
  Weight: 59 kg

DRUGS (2)
  1. ACCUTANE [Suspect]
     Indication: ACNE
     Route: 065
     Dates: start: 1987, end: 1988
  2. ACCUTANE [Suspect]
     Route: 065
     Dates: start: 199001, end: 199007

REACTIONS (8)
  - Crohn^s disease [Unknown]
  - Perirectal abscess [Unknown]
  - Gastrointestinal injury [Unknown]
  - Depression [Unknown]
  - Colitis ulcerative [Unknown]
  - Inflammatory bowel disease [Unknown]
  - Anal fistula [Unknown]
  - Arthritis [Unknown]
